FAERS Safety Report 6530345-0 (Version None)
Quarter: 2010Q1

REPORT INFORMATION
  Report Type: 
  Country: None (occurrence: None)
  Receive Date: 20100107
  Receipt Date: 20091229
  Transmission Date: 20100710
  Serious: Yes (Hospitalization)
  Sender: FDA-Public Use
  Company Number: US-BAXTER-2009BH019877

PATIENT
  Age: 46 Year
  Sex: Female

DRUGS (6)
  1. ENDOXAN BAXTER [Suspect]
     Indication: MULTIPLE SCLEROSIS
     Route: 065
     Dates: start: 20090101
  2. ENDOXAN BAXTER [Suspect]
     Indication: OFF LABEL USE
     Route: 065
     Dates: start: 20090101
  3. INTERFERON BETA [Suspect]
     Indication: MULTIPLE SCLEROSIS
     Route: 065
     Dates: end: 20091101
  4. COPAXONE [Suspect]
     Indication: MULTIPLE SCLEROSIS
     Route: 058
     Dates: start: 20091117, end: 20091101
  5. COPAXONE [Suspect]
     Route: 058
     Dates: start: 20091120
  6. IMMUNE GLOBULIN INTRAVENOUS (HUMAN), 20% SOLUTION [Suspect]
     Indication: MULTIPLE SCLEROSIS
     Route: 042
     Dates: end: 20091101

REACTIONS (1)
  - CONVULSION [None]
